FAERS Safety Report 6279554-9 (Version None)
Quarter: 2009Q3

REPORT INFORMATION
  Report Type: 
  Country: None (occurrence: None)
  Receive Date: 20090723
  Receipt Date: 20090713
  Transmission Date: 20100115
  Serious: Yes (Hospitalization, Congenital Anomaly)
  Sender: FDA-Public Use
  Company Number: A0748060A

PATIENT
  Sex: Male
  Weight: 2.7 kg

DRUGS (4)
  1. PAXIL CR [Suspect]
     Indication: DEPRESSION
     Dosage: 25MG PER DAY
     Dates: start: 20020401, end: 20060101
  2. VITAMIN TAB [Concomitant]
  3. IRON [Concomitant]
  4. ACID REFLUX MED. [Concomitant]

REACTIONS (4)
  - AORTICOPULMONARY SEPTAL DEFECT [None]
  - ATRIAL SEPTAL DEFECT [None]
  - DRUG EXPOSURE DURING PREGNANCY [None]
  - INTERRUPTION OF AORTIC ARCH [None]
